FAERS Safety Report 5319693-X (Version None)
Quarter: 2007Q2

REPORT INFORMATION
  Report Type: 
  Country: None (occurrence: None)
  Receive Date: 20070508
  Receipt Date: 20070426
  Transmission Date: 20071010
  Serious: Yes (Other)
  Sender: FDA-Public Use
  Company Number: US-SHR-US-2007-015185

PATIENT
  Age: 35 Year
  Sex: Female
  Weight: 60.317 kg

DRUGS (1)
  1. YASMIN [Suspect]
     Indication: ORAL CONTRACEPTION
     Dosage: 1 TAB(S), 1X/DAY
     Route: 048
     Dates: start: 20010101, end: 20070401

REACTIONS (4)
  - ANKLE OPERATION [None]
  - GINGIVAL BLEEDING [None]
  - KNEE OPERATION [None]
  - LOSS OF LIBIDO [None]
